FAERS Safety Report 9835347 (Version 2)
Quarter: 2014Q1

REPORT INFORMATION
  Report Type: Spontaneous
  Country: ZA (occurrence: ZA)
  Receive Date: 20140122
  Receipt Date: 20140122
  Transmission Date: 20141002
  Serious: Yes (Death)
  Sender: FDA-Public Use
  Company Number: ZA-PFIZER INC-2014014195

PATIENT
  Age: 18 Year
  Sex: Female

DRUGS (23)
  1. CYTARABINE [Suspect]
     Indication: ACUTE MYELOID LEUKAEMIA
     Dosage: MONTHLY CYCLES
  2. DAUNORUBICIN HCL [Suspect]
     Indication: ACUTE MYELOID LEUKAEMIA
     Dosage: MONTHLY CYCLES
  3. ETOPOSIDE [Suspect]
     Dosage: 200 MG, UNK
     Route: 041
  4. BUSULPHAN [Suspect]
     Dosage: 1 MG/KG, DAILY
     Route: 048
  5. 6-THIOGUANINE [Suspect]
     Indication: ACUTE MYELOID LEUKAEMIA
     Dosage: MONTHLY CYCLES
  6. VINCRISTINE SULFATE [Concomitant]
     Indication: ACUTE MYELOID LEUKAEMIA
     Dosage: UNK
  7. PREDNISOLONE [Concomitant]
     Indication: ACUTE MYELOID LEUKAEMIA
     Dosage: UNK
  8. L-ASPARAGINASE [Concomitant]
     Indication: ACUTE MYELOID LEUKAEMIA
     Dosage: UNK
  9. CYCLOPHOSPHAMIDE [Concomitant]
     Indication: BONE MARROW CONDITIONING REGIMEN
     Dosage: 60 MG/KG, UNK
     Route: 042
  10. METHOTREXATE [Concomitant]
     Indication: PROPHYLAXIS
     Dosage: 12 MG/M2, UNK, ON DAY 1
  11. METHOTREXATE [Concomitant]
     Dosage: 10 MG/M2, UNK, ON DAYS 3 AND 6
  12. KANAMYCIN [Concomitant]
     Indication: PREMEDICATION
     Dosage: 500 MG, 6-HOURLY
     Route: 048
  13. METOCLOPRAMIDE [Concomitant]
     Indication: ANTIEMETIC SUPPORTIVE CARE
     Dosage: 10 MG, UNK
  14. METRONIDAZOLE [Concomitant]
     Indication: VAGINAL DISCHARGE
     Dosage: UNK
  15. NYSTATIN [Concomitant]
     Indication: VAGINAL DISCHARGE
     Dosage: UNK
  16. INTRALIPID [Concomitant]
     Dosage: 500 ML 10%
  17. TRAVASOL [Concomitant]
     Dosage: A MIXTURE OF 500 ML 8.5%
  18. LITHIUM CARBONATE [Concomitant]
     Indication: BONE MARROW FAILURE
     Dosage: 500 MG, 2X/DAY
     Route: 048
  19. CODEINE PHOSPHATE [Concomitant]
     Indication: DIARRHOEA
     Dosage: 30 MG, 4X/DAY (ON THE DAY OF TRANSPLANTATION)
     Route: 048
  20. CODEINE PHOSPHATE [Concomitant]
     Indication: PREMEDICATION
  21. CHLORPROMAZINE [Concomitant]
     Indication: VOMITING
     Dosage: 50 MG
     Route: 042
  22. PREMARIN [Concomitant]
     Indication: MENSTRUATION NORMAL
     Dosage: 20 MG, 4X/DAY, FOR 3 DOSES AND THEN REDUCING OVER 2 DAYS
     Route: 042
  23. HYDROXYPROGESTERONE CAPROATE [Concomitant]
     Indication: MENSTRUATION NORMAL
     Dosage: 5 MG, 8 HOURLY

REACTIONS (1)
  - Budd-Chiari syndrome [Fatal]
